FAERS Safety Report 13501165 (Version 3)
Quarter: 2018Q2

REPORT INFORMATION
  Report Type: Spontaneous
  Country: US (occurrence: US)
  Receive Date: 20170501
  Receipt Date: 20180507
  Transmission Date: 20180711
  Serious: No
  Sender: FDA-Public Use
  Company Number: US-ROCHE-1890045

PATIENT
  Age: 73 Year
  Sex: Male

DRUGS (2)
  1. ESBRIET [Suspect]
     Active Substance: PIRFENIDONE
     Indication: IDIOPATHIC PULMONARY FIBROSIS
     Dosage: USE AS DIRECTED BY PHYSICIAN
     Route: 048
     Dates: start: 20160929
  2. ESBRIET [Suspect]
     Active Substance: PIRFENIDONE
     Route: 048

REACTIONS (3)
  - Weight decreased [Not Recovered/Not Resolved]
  - Panic attack [Unknown]
  - Anxiety [Unknown]

NARRATIVE: CASE EVENT DATE: 201702
